FAERS Safety Report 16270040 (Version 2)
Quarter: 2019Q2

REPORT INFORMATION
  Report Type: Spontaneous
  Country: US (occurrence: US)
  Receive Date: 20190503
  Receipt Date: 20190509
  Transmission Date: 20190711
  Serious: Yes (Disabling, Other)
  Sender: FDA-Public Use
  Company Number: US-REGENERON PHARMACEUTICALS, INC.-2019-29359

PATIENT

DRUGS (3)
  1. EYLEA [Suspect]
     Active Substance: AFLIBERCEPT
     Indication: NEOVASCULARISATION
     Dosage: 2 MG, EVERY 2 MONTHS, OS
     Route: 031
     Dates: start: 201812, end: 201812
  2. EYLEA [Suspect]
     Active Substance: AFLIBERCEPT
     Indication: NEOVASCULAR AGE-RELATED MACULAR DEGENERATION
     Dosage: 2 MG, EVERY 2 MONTHS, OS
     Route: 031
     Dates: start: 201609
  3. EYLEA [Suspect]
     Active Substance: AFLIBERCEPT
     Dosage: 2 MG, EVERY 2 MONTHS, OS
     Route: 031
     Dates: start: 20190416, end: 20190416

REACTIONS (7)
  - Blindness unilateral [Unknown]
  - Myocardial infarction [Unknown]
  - Metamorphopsia [Unknown]
  - Drug ineffective [Unknown]
  - Eye disorder [Unknown]
  - Retinal scar [Unknown]
  - Vision blurred [Not Recovered/Not Resolved]
